FAERS Safety Report 14161346 (Version 1)
Quarter: 2017Q4

REPORT INFORMATION
  Report Type: Spontaneous
  Country: US (occurrence: US)
  Receive Date: 20171106
  Receipt Date: 20171106
  Transmission Date: 20180321
  Serious: Yes (Hospitalization, Other)
  Sender: FDA-Public Use
  Company Number: US-SUNOVION-2017SUN004734

PATIENT
  Age: 77 Year
  Sex: Male
  Weight: 95.24 kg

DRUGS (2)
  1. ASA [Concomitant]
     Active Substance: ASPIRIN
     Indication: CEREBROVASCULAR ACCIDENT
     Dosage: UNK
  2. BROVANA [Suspect]
     Active Substance: ARFORMOTEROL TARTRATE
     Indication: SEASONAL ALLERGY
     Dosage: 15MCG/2ML
     Route: 055

REACTIONS (5)
  - Cerebrovascular accident [Unknown]
  - Vein rupture [Unknown]
  - Off label use [Unknown]
  - Monoparesis [Unknown]
  - Hemiparesis [Not Recovered/Not Resolved]

NARRATIVE: CASE EVENT DATE: 201709
